FAERS Safety Report 16474403 (Version 2)
Quarter: 2019Q3

REPORT INFORMATION
  Report Type: Spontaneous
  Country: US (occurrence: US)
  Receive Date: 20190625
  Receipt Date: 20190718
  Transmission Date: 20191004
  Serious: Yes (Hospitalization)
  Sender: FDA-Public Use
  Company Number: US-PROCTER_AND_GAMBLE-GS19064339

PATIENT
  Age: 71 Year
  Sex: Female
  Weight: 70.3 kg

DRUGS (2)
  1. PEPTO-BISMOL [Suspect]
     Active Substance: BISMUTH SUBSALICYLATE
     Indication: DIARRHOEA
     Dosage: 4 OZ, 1 ONLY
     Route: 048
     Dates: start: 20190411, end: 20190411
  2. IMODIUM [Suspect]
     Active Substance: LOPERAMIDE HYDROCHLORIDE
     Indication: DIARRHOEA
     Dosage: 4 MILLIGRAM
     Route: 048

REACTIONS (4)
  - Incorrect dose administered [Unknown]
  - Confusional state [Recovered/Resolved]
  - Overdose [Unknown]
  - Transient global amnesia [Recovered/Resolved]

NARRATIVE: CASE EVENT DATE: 20190411
